FAERS Safety Report 11329950 (Version 2)
Quarter: 2015Q3

REPORT INFORMATION
  Report Type: Report from Study
  Country: VE (occurrence: VE)
  Receive Date: 20150803
  Receipt Date: 20150814
  Transmission Date: 20151125
  Serious: Yes (Other)
  Sender: FDA-Public Use
  Company Number: PHHY2015VE091852

PATIENT
  Age: 79 Year
  Sex: Female

DRUGS (7)
  1. FEMARA [Suspect]
     Active Substance: LETROZOLE
     Indication: BREAST CANCER
     Dosage: 2.5 MG, QD
     Route: 048
     Dates: start: 20120206
  2. RIVOTRIL [Concomitant]
     Active Substance: CLONAZEPAM
     Indication: SLEEP DISORDER
     Dosage: 2 MG, QD
     Route: 048
  3. TROPOCER [Concomitant]
     Indication: VERTIGO
     Dosage: UNK, QMO
     Route: 048
  4. CALCIBON D [Concomitant]
     Indication: ARTHRITIS
  5. CALCIBON D [Concomitant]
     Indication: OSTEOPOROSIS
     Dosage: UNK UNK, BID
     Route: 048
  6. CINAREN [Concomitant]
     Indication: VERTIGO
     Dosage: UNK UNK, QD
     Route: 048
  7. CINAREN [Concomitant]
     Indication: DIZZINESS

REACTIONS (7)
  - Spinal compression fracture [Recovering/Resolving]
  - Pain in extremity [Recovered/Resolved with Sequelae]
  - Chikungunya virus infection [Recovered/Resolved with Sequelae]
  - Spinal fracture [Recovering/Resolving]
  - Arthritis [Recovered/Resolved with Sequelae]
  - Dysstasia [Unknown]
  - Fall [Recovering/Resolving]

NARRATIVE: CASE EVENT DATE: 20150210
